FAERS Safety Report 9726851 (Version 2)
Quarter: 2014Q1

REPORT INFORMATION
  Report Type: Spontaneous
  Country: US (occurrence: US)
  Receive Date: 20131203
  Receipt Date: 20140210
  Transmission Date: 20141002
  Serious: No
  Sender: FDA-Public Use
  Company Number: US-PFIZER INC-2013341963

PATIENT
  Age: 62 Year
  Sex: Female
  Weight: 86.2 kg

DRUGS (4)
  1. VENLAFAXINE HCL [Suspect]
     Indication: DEPRESSION
     Dosage: 150 MG, DAILY
  2. VENLAFAXINE HCL [Suspect]
     Indication: ANXIETY
  3. LAMOTRIGINE [Concomitant]
     Dosage: 200 MG, DAILY
  4. LEVODOPA-CARBIDOPA [Concomitant]
     Indication: RESTLESS LEGS SYNDROME
     Dosage: UNK

REACTIONS (1)
  - Drug ineffective [Unknown]
